FAERS Safety Report 15437932 (Version 2)
Quarter: 2019Q1

REPORT INFORMATION
  Report Type: Spontaneous
  Country: DE (occurrence: DE)
  Receive Date: 20180928
  Receipt Date: 20190202
  Transmission Date: 20190417
  Serious: Yes (Hospitalization, Other)
  Sender: FDA-Public Use
  Company Number: DE-AUROBINDO-AUR-APL-2018-045431

PATIENT

DRUGS (13)
  1. OXALIPLATIN. [Suspect]
     Active Substance: OXALIPLATIN
     Dosage: 130 MILLIGRAM
     Route: 065
     Dates: start: 20190109
  2. PANITUMUMAB [Suspect]
     Active Substance: PANITUMUMAB
     Dosage: 300 MILLIGRAM
     Route: 042
     Dates: start: 20181002
  3. ACETYLSALICYLIC ACID [Concomitant]
     Active Substance: ASPIRIN
     Indication: PROPHYLAXIS
     Dosage: 100 MILLIGRAM, ONCE A DAY
     Route: 048
  4. FOLINIC ACID [Suspect]
     Active Substance: LEUCOVORIN
     Dosage: 300 MILLIGRAM
     Route: 065
     Dates: start: 20181001
  5. FLUOROURACIL. [Suspect]
     Active Substance: FLUOROURACIL
     Indication: COLORECTAL CANCER METASTATIC
     Dosage: 700 MG, UNK
     Route: 040
     Dates: start: 20180703
  6. FLUOROURACIL. [Suspect]
     Active Substance: FLUOROURACIL
     Dosage: 600 MG, UNK
     Route: 040
     Dates: start: 20181001
  7. PANITUMUMAB [Suspect]
     Active Substance: PANITUMUMAB
     Indication: COLORECTAL CANCER METASTATIC
     Dosage: 420 MG, UNK
     Route: 042
     Dates: start: 20180704
  8. FLUOROURACIL. [Suspect]
     Active Substance: FLUOROURACIL
     Dosage: 1100 MG, UNK
     Route: 042
     Dates: start: 20180703
  9. OXALIPLATIN. [Suspect]
     Active Substance: OXALIPLATIN
     Indication: COLORECTAL CANCER METASTATIC
     Dosage: 150 MG, UNK
     Route: 065
     Dates: start: 20180703
  10. FLUOROURACIL. [Suspect]
     Active Substance: FLUOROURACIL
     Dosage: 300 MILLIGRAM
     Route: 042
     Dates: start: 20181210
  11. RAMIPRIL RATIOPHARM [Concomitant]
     Active Substance: RAMIPRIL
     Indication: HYPERTENSION
     Dosage: 25 MG, QD
     Route: 048
  12. FOLINIC ACID [Suspect]
     Active Substance: LEUCOVORIN
     Indication: COLORECTAL CANCER METASTATIC
     Dosage: 350 MG, UNK
     Route: 065
     Dates: start: 20180703
  13. L-THYROXIN HENNING [Concomitant]
     Active Substance: LEVOTHYROXINE SODIUM
     Indication: HYPOTHYROIDISM
     Dosage: 50 MICROGRAM, ONCE A DAY
     Route: 048

REACTIONS (3)
  - Hypokalaemia [Recovered/Resolved]
  - Ulcerative gastritis [Recovered/Resolved]
  - Mucosal inflammation [Recovered/Resolved]

NARRATIVE: CASE EVENT DATE: 20180813
